FAERS Safety Report 21098431 (Version 4)
Quarter: 2022Q4

REPORT INFORMATION
  Report Type: Spontaneous
  Country: US (occurrence: US)
  Receive Date: 20220719
  Receipt Date: 20221019
  Transmission Date: 20230112
  Serious: Yes (Hospitalization)
  Sender: FDA-Public Use
  Company Number: US-BRISTOL-MYERS SQUIBB COMPANY-2022-071488

PATIENT
  Age: 83 Year
  Sex: Male

DRUGS (1)
  1. REVLIMID [Suspect]
     Active Substance: LENALIDOMIDE
     Indication: Product used for unknown indication
     Dosage: 10MG DAILY FOR 14 DAYS ON 7
     Route: 048
     Dates: start: 202206, end: 202209

REACTIONS (9)
  - Blood potassium increased [Unknown]
  - Fatigue [Unknown]
  - Heart rate increased [Unknown]
  - Cough [Unknown]
  - Constipation [Unknown]
  - Diarrhoea [Unknown]
  - Dyspnoea [Recovered/Resolved]
  - Off label use [Unknown]
  - Malaise [Unknown]

NARRATIVE: CASE EVENT DATE: 20220701
